FAERS Safety Report 11522168 (Version 2)
Quarter: 2015Q4

REPORT INFORMATION
  Report Type: Spontaneous
  Country: DE (occurrence: DE)
  Receive Date: 20150918
  Receipt Date: 20151008
  Transmission Date: 20160304
  Serious: Yes (Hospitalization)
  Sender: FDA-Public Use
  Company Number: DE-PFIZER INC-2015241000

PATIENT
  Age: 78 Year
  Sex: Male
  Weight: 64 kg

DRUGS (15)
  1. VFEND [Suspect]
     Active Substance: VORICONAZOLE
     Indication: BRAIN ABSCESS
     Dosage: 300 MG, 2X/DAY
     Route: 042
     Dates: start: 20150713, end: 20150714
  2. FRESUBIN ORIGINAL [Concomitant]
     Indication: NUTRITIONAL SUPPLEMENTATION
     Dosage: 100 ML/H
     Route: 048
  3. RAMIPRIL. [Concomitant]
     Active Substance: RAMIPRIL
     Indication: HYPERTENSION
     Dosage: 5 UNK, UNK
     Route: 048
  4. VFEND [Suspect]
     Active Substance: VORICONAZOLE
     Indication: BRAIN ABSCESS
  5. VFEND [Suspect]
     Active Substance: VORICONAZOLE
     Dosage: 400 MG, 2X/DAY
     Route: 042
     Dates: start: 20150724
  6. KEPPRA [Concomitant]
     Active Substance: LEVETIRACETAM
     Indication: EPILEPSY
     Dosage: 500 UNK, UNK
     Route: 048
  7. VFEND [Suspect]
     Active Substance: VORICONAZOLE
     Dosage: 300 MG, 2X/DAY
     Route: 042
     Dates: start: 20150719, end: 20150719
  8. VFEND [Suspect]
     Active Substance: VORICONAZOLE
     Dosage: 400 MG, 2X/DAY
     Route: 042
     Dates: start: 20150720, end: 20150720
  9. VFEND [Suspect]
     Active Substance: VORICONAZOLE
     Indication: BRAIN ABSCESS
     Dosage: 600 MG, 2X/DAY
     Route: 048
     Dates: start: 20150812
  10. VFEND [Suspect]
     Active Substance: VORICONAZOLE
     Dosage: 200 MG, 2X/DAY
     Route: 042
     Dates: start: 20150721
  11. VFEND [Suspect]
     Active Substance: VORICONAZOLE
     Indication: CEREBRAL ASPERGILLOSIS
     Dosage: 300 MG, 2X/DAY
     Route: 048
     Dates: start: 20150715
  12. NEXIUM [Concomitant]
     Active Substance: ESOMEPRAZOLE MAGNESIUM
     Indication: PROPHYLAXIS AGAINST GASTROINTESTINAL ULCER
     Dosage: 40 UNK, UNK
     Route: 048
  13. VFEND [Suspect]
     Active Substance: VORICONAZOLE
     Indication: CEREBRAL ASPERGILLOSIS
     Dosage: 400 MG, 2X/DAY
     Route: 042
     Dates: start: 20150624
  14. VFEND [Suspect]
     Active Substance: VORICONAZOLE
     Indication: CEREBRAL ASPERGILLOSIS
     Dosage: 200 MG, 2X/DAY
     Route: 048
     Dates: start: 20150707
  15. HCT [Concomitant]
     Active Substance: HYDROCHLOROTHIAZIDE
     Indication: HYPERTENSION
     Dosage: 25 UNK, UNK
     Route: 048

REACTIONS (2)
  - Drug level decreased [Unknown]
  - Drug ineffective [Unknown]

NARRATIVE: CASE EVENT DATE: 20150710
